FAERS Safety Report 17266799 (Version 2)
Quarter: 2020Q1

REPORT INFORMATION
  Report Type: Spontaneous
  Country: US (occurrence: US)
  Receive Date: 20200114
  Receipt Date: 20200323
  Transmission Date: 20200409
  Serious: Yes (Other)
  Sender: FDA-Public Use
  Company Number: US-ASPEN-GLO2020US000098

PATIENT
  Age: 5 Year
  Sex: Male

DRUGS (3)
  1. TIOGUANINE [Suspect]
     Active Substance: THIOGUANINE ANHYDROUS
     Indication: B-CELL TYPE ACUTE LEUKAEMIA
     Route: 065
  2. METHOTREXATE. [Suspect]
     Active Substance: METHOTREXATE
     Indication: B-CELL TYPE ACUTE LEUKAEMIA
     Dosage: FIRST DAY OF CYTARABINE
     Route: 037
  3. CYTARABINE. [Suspect]
     Active Substance: CYTARABINE
     Indication: B-CELL TYPE ACUTE LEUKAEMIA
     Dosage: 3 CONSECUTIVE DAYS
     Route: 065

REACTIONS (4)
  - Venoocclusive disease [Unknown]
  - Blindness [Unknown]
  - Eye haemorrhage [Unknown]
  - Thrombocytopenia [Unknown]
